FAERS Safety Report 22169013 (Version 3)
Quarter: 2024Q1

REPORT INFORMATION
  Report Type: Report from Study
  Country: US (occurrence: US)
  Receive Date: 20230404
  Receipt Date: 20240318
  Transmission Date: 20240410
  Serious: No
  Sender: FDA-Public Use
  Company Number: US-ESPERIONTHERAPEUTICS-2023USA00300

PATIENT
  Age: 68 Year
  Sex: Female

DRUGS (3)
  1. BEMPEDOIC ACID [Suspect]
     Active Substance: BEMPEDOIC ACID
     Indication: Coronary artery disease
     Dosage: 180 MILLIGRAM, QOD
     Route: 048
     Dates: start: 20230202, end: 202303
  2. BEMPEDOIC ACID [Suspect]
     Active Substance: BEMPEDOIC ACID
     Indication: Type IIa hyperlipidaemia
     Dosage: 180 MILLIGRAM, QD
     Route: 048
     Dates: start: 202303, end: 20230323
  3. XANAX [Concomitant]
     Active Substance: ALPRAZOLAM
     Dosage: UNK
     Route: 065

REACTIONS (16)
  - Drug hypersensitivity [Recovering/Resolving]
  - Lethargy [Recovering/Resolving]
  - Hypoaesthesia [Recovering/Resolving]
  - Blood pressure increased [Recovering/Resolving]
  - Sinusitis [Recovering/Resolving]
  - Product use issue [Recovered/Resolved]
  - Fatigue [Not Recovered/Not Resolved]
  - Skin swelling [Recovered/Resolved]
  - Pruritus [Recovered/Resolved]
  - Eye pruritus [Not Recovered/Not Resolved]
  - Feeling abnormal [Recovering/Resolving]
  - Urticaria [Recovering/Resolving]
  - Eye irritation [Recovering/Resolving]
  - Flushing [Recovering/Resolving]
  - Expired product administered [Recovered/Resolved]
  - Pain [Not Recovered/Not Resolved]

NARRATIVE: CASE EVENT DATE: 20230301
